FAERS Safety Report 6977601-X (Version None)
Quarter: 2010Q3

REPORT INFORMATION
  Report Type: 
  Country: None (occurrence: None)
  Receive Date: 20100913
  Receipt Date: 20100901
  Transmission Date: 20110219
  Serious: Yes (Hospitalization)
  Sender: FDA-Public Use
  Company Number: 2006BI006584

PATIENT
  Age: 51 Year
  Sex: Female

DRUGS (2)
  1. AVONEX [Suspect]
     Indication: MULTIPLE SCLEROSIS
     Route: 030
     Dates: start: 19970505
  2. AVONEX [Suspect]
     Route: 030
     Dates: end: 20100805

REACTIONS (3)
  - MULTIPLE SCLEROSIS RELAPSE [None]
  - PYREXIA [None]
  - UPPER RESPIRATORY TRACT INFECTION [None]
